FAERS Safety Report 6285488-6 (Version None)
Quarter: 2009Q3

REPORT INFORMATION
  Report Type: 
  Country: None (occurrence: None)
  Receive Date: 20090727
  Receipt Date: 20090713
  Transmission Date: 20100115
  Serious: Yes (Other)
  Sender: FDA-Public Use
  Company Number: DE-MYLANLABS-2009S1012412

PATIENT
  Sex: Male
  Weight: 100 kg

DRUGS (4)
  1. RAMIPRIL DURA [Suspect]
     Indication: INTENTIONAL OVERDOSE
     Route: 048
     Dates: start: 20090713, end: 20090713
  2. ENALAPRIL MALEATE [Suspect]
     Indication: INTENTIONAL OVERDOSE
     Route: 048
     Dates: start: 20090713, end: 20090713
  3. VENLAFAXINE HCL [Suspect]
     Indication: INTENTIONAL OVERDOSE
     Route: 048
     Dates: start: 20090713, end: 20090713
  4. VENLAFAXINE HCL [Suspect]
     Dates: start: 20090713, end: 20090713

REACTIONS (2)
  - INTENTIONAL OVERDOSE [None]
  - SUICIDE ATTEMPT [None]
